FAERS Safety Report 12736526 (Version 2)
Quarter: 2016Q4

REPORT INFORMATION
  Report Type: Report from Study
  Country: US (occurrence: US)
  Receive Date: 20160912
  Receipt Date: 20161014
  Transmission Date: 20170207
  Serious: Yes (Death, Hospitalization)
  Sender: FDA-Public Use
  Company Number: US-JNJFOC-20160328974

PATIENT
  Age: 90 Year
  Sex: Male

DRUGS (15)
  1. DULCOLAX NOS [Concomitant]
     Active Substance: BISACODYL OR DOCUSATE SODIUM
     Route: 048
  2. COLACE [Concomitant]
     Active Substance: DOCUSATE SODIUM
  3. MIRTAZAPINE. [Concomitant]
     Active Substance: MIRTAZAPINE
     Route: 048
  4. SIMETHICONE (DIMETHICONE) [Concomitant]
     Active Substance: DIMETHICONE
     Route: 048
  5. COREG [Concomitant]
     Active Substance: CARVEDILOL
     Route: 048
  6. BENADRYL [Concomitant]
     Active Substance: DIPHENHYDRAMINE HYDROCHLORIDE
     Route: 048
  7. DURAGESIC [Concomitant]
     Active Substance: FENTANYL
  8. ALEVE [Concomitant]
     Active Substance: NAPROXEN SODIUM
     Route: 048
  9. HYDROCODONE BITARTRATE W/PARACETAMOL [Concomitant]
     Active Substance: ACETAMINOPHEN\HYDROCODONE BITARTRATE
     Route: 048
  10. CELEXA [Concomitant]
     Active Substance: CITALOPRAM HYDROBROMIDE
     Route: 048
  11. PANTOPRAZOLE SODIUM. [Concomitant]
     Active Substance: PANTOPRAZOLE SODIUM
     Route: 048
  12. IMBRUVICA [Suspect]
     Active Substance: IBRUTINIB
     Indication: MANTLE CELL LYMPHOMA
     Route: 048
     Dates: start: 20140227, end: 20160222
  13. IMBRUVICA [Suspect]
     Active Substance: IBRUTINIB
     Indication: MANTLE CELL LYMPHOMA
     Route: 048
     Dates: start: 20160223
  14. ACETYLSALICYLIC ACID [Concomitant]
     Active Substance: ASPIRIN
     Route: 048
  15. SODIUM APOLATE [Concomitant]

REACTIONS (8)
  - Arthralgia [Unknown]
  - Decreased appetite [Unknown]
  - Dehydration [Recovered/Resolved]
  - Joint effusion [Unknown]
  - Asthenia [Recovered/Resolved]
  - Osteoarthritis [Unknown]
  - Disease progression [Fatal]
  - Orthostatic hypotension [Recovered/Resolved]

NARRATIVE: CASE EVENT DATE: 20160215
